FAERS Safety Report 9168638 (Version 2)
Quarter: 2013Q3

REPORT INFORMATION
  Report Type: Spontaneous
  Country: TH (occurrence: TH)
  Receive Date: 20130318
  Receipt Date: 20130708
  Transmission Date: 20140515
  Serious: Yes (Death, Hospitalization, Disabling, Other)
  Sender: FDA-Public Use
  Company Number: PHHY2012TH096959

PATIENT
  Age: 70 Year
  Sex: Male

DRUGS (6)
  1. TASIGNA [Suspect]
     Indication: CHRONIC MYELOID LEUKAEMIA
     Dosage: 400 MG, BID
     Route: 048
     Dates: start: 20110515
  2. TASIGNA [Suspect]
     Dosage: 3 DF, 2 TABLET MORNING AND ONE TABLET EVENING
     Route: 048
  3. TASIGNA [Suspect]
     Dosage: 400 MG, BID
     Route: 048
     Dates: start: 20120623
  4. AMLODIPINE [Concomitant]
     Dosage: 10 MG
     Route: 048
     Dates: start: 201101
  5. HYDROCHLOORTHIAZIDE [Concomitant]
     Dosage: 50 MG,HALF TABLET ONCE DAILY
     Dates: start: 201112
  6. HYDROXYUREA [Concomitant]
     Dosage: 3 DF, QD
     Dates: start: 20121004

REACTIONS (11)
  - Chronic myeloid leukaemia [Fatal]
  - Malignant neoplasm progression [Fatal]
  - Pleural effusion [Recovering/Resolving]
  - Renal failure chronic [Recovering/Resolving]
  - Drug intolerance [Recovering/Resolving]
  - Aphagia [Recovering/Resolving]
  - Haematocrit decreased [Unknown]
  - Anaemia [Recovering/Resolving]
  - Vomiting [Recovering/Resolving]
  - Fatigue [Recovering/Resolving]
  - Asthenia [Recovering/Resolving]
